FAERS Safety Report 10803738 (Version 1)
Quarter: 2015Q1

REPORT INFORMATION
  Report Type: Spontaneous
  Country: JP (occurrence: JP)
  Receive Date: 20150217
  Receipt Date: 20150217
  Transmission Date: 20150721
  Serious: Yes (Death, Hospitalization)
  Sender: FDA-Public Use
  Company Number: JP-TEVA-2015-JP-000043J

PATIENT
  Age: 6 Decade
  Sex: Female

DRUGS (1)
  1. EPOPROSTENOL INTRAVENOUS 1.5MG ^TAIYO^ [Suspect]
     Active Substance: EPOPROSTENOL
     Indication: PULMONARY ARTERIAL HYPERTENSION
     Route: 042
     Dates: start: 201205, end: 201412

REACTIONS (2)
  - Pulmonary haemorrhage [Fatal]
  - Platelet count decreased [Fatal]
